FAERS Safety Report 9741005 (Version 2)
Quarter: 2014Q2

REPORT INFORMATION
  Report Type: Spontaneous
  Country: US (occurrence: US)
  Receive Date: 20131209
  Receipt Date: 20140530
  Transmission Date: 20141212
  Serious: Yes (Death, Hospitalization, Other)
  Sender: FDA-Public Use
  Company Number: US-B.I. PHARMACEUTICALS,INC./RIDGEFIELD-2013-BI-40840BP

PATIENT
  Sex: Female
  Weight: 40.37 kg

DRUGS (9)
  1. PRADAXA [Suspect]
     Indication: ATRIAL FIBRILLATION
     Dosage: 300 MG
     Route: 048
     Dates: start: 20110114, end: 201212
  2. LASIX [Concomitant]
     Dosage: 40 MG
     Route: 048
  3. JANUVIA [Concomitant]
     Dosage: 100 MG
     Route: 048
  4. CRESTOR [Concomitant]
     Dosage: 10 MG
     Route: 048
  5. TOPROL XL [Concomitant]
     Dosage: 25 MG
     Route: 048
  6. PRINIVIL [Concomitant]
     Dosage: 5 MG
     Route: 048
  7. CENTRUM SILVER [Concomitant]
     Route: 065
  8. MELATONIN [Concomitant]
     Route: 048
  9. MIRALAX [Concomitant]
     Dosage: 17 G
     Route: 048

REACTIONS (10)
  - Hypovolaemic shock [Fatal]
  - Septic shock [Fatal]
  - Respiratory failure [Fatal]
  - Renal failure acute [Fatal]
  - Hydronephrosis [Fatal]
  - Metabolic acidosis [Fatal]
  - Haemorrhagic anaemia [Fatal]
  - Gastrointestinal haemorrhage [Unknown]
  - Coagulopathy [Unknown]
  - Epistaxis [Unknown]
